FAERS Safety Report 7768655-1 (Version None)
Quarter: 2011Q3

REPORT INFORMATION
  Report Type: 
  Country: None (occurrence: None)
  Receive Date: 20110922
  Receipt Date: 20110103
  Transmission Date: 20111222
  Serious: No
  Sender: FDA-Public Use
  Company Number: US-ASTRAZENECA-2011SE00129

PATIENT
  Age: 14 Year
  Sex: Male
  Weight: 111.1 kg

DRUGS (3)
  1. SEROQUEL XR [Suspect]
     Indication: ATTENTION DEFICIT/HYPERACTIVITY DISORDER
     Dosage: TOTAL DAILY DOSE 100 MG. THREE TIMES A DAY
     Route: 048
     Dates: start: 20101201
  2. SEROQUEL XR [Suspect]
     Indication: ANGER
     Dosage: TOTAL DAILY DOSE 100 MG. THREE TIMES A DAY
     Route: 048
     Dates: start: 20101201
  3. SEROQUEL XR [Suspect]
     Indication: OPPOSITIONAL DEFIANT DISORDER
     Dosage: TOTAL DAILY DOSE 100 MG. THREE TIMES A DAY
     Route: 048
     Dates: start: 20101201

REACTIONS (2)
  - POLYDIPSIA [None]
  - MUSCLE TWITCHING [None]
